FAERS Safety Report 9669838 (Version 1)
Quarter: 2013Q4

REPORT INFORMATION
  Report Type: Spontaneous
  Country: US (occurrence: None)
  Receive Date: 20131104
  Receipt Date: 20131104
  Transmission Date: 20140711
  Serious: Yes (Other)
  Sender: FDA-Public Use
  Company Number: None

PATIENT
  Age: 66 Year
  Sex: Female

DRUGS (2)
  1. BOSULIF [Suspect]
     Route: 048
     Dates: start: 20130717
  2. MULTIVITAMIN [Concomitant]

REACTIONS (1)
  - Renal disorder [None]
